FAERS Safety Report 7474799-4 (Version None)
Quarter: 2011Q2

REPORT INFORMATION
  Report Type: 
  Country: None (occurrence: None)
  Receive Date: 20110512
  Receipt Date: 20110328
  Transmission Date: 20111010
  Serious: Yes (Hospitalization, Other)
  Sender: FDA-Public Use
  Company Number: US-BAYER-2011-002412

PATIENT
  Age: 18 Year
  Sex: Female
  Weight: 51.7 kg

DRUGS (6)
  1. PENICILLIN NOS [Concomitant]
  2. MEDROXYPROGESTERONE [Concomitant]
  3. AMOXICILLIN [Concomitant]
  4. YASMIN [Suspect]
     Indication: CONTRACEPTION
     Dosage: UNK
     Route: 048
     Dates: start: 20061023, end: 20070227
  5. DEPO-PROVERA [Concomitant]
     Dosage: UNK
     Dates: start: 20070201
  6. AZITHROMYCIN [Concomitant]

REACTIONS (5)
  - CHOLECYSTITIS CHRONIC [None]
  - DEPRESSION [None]
  - PAIN [None]
  - ABDOMINAL PAIN [None]
  - BILIARY DYSKINESIA [None]
